FAERS Safety Report 14814035 (Version 1)
Quarter: 2018Q2

REPORT INFORMATION
  Report Type: Spontaneous
  Country: FR (occurrence: FR)
  Receive Date: 20180426
  Receipt Date: 20180426
  Transmission Date: 20180711
  Serious: Yes (Other)
  Sender: FDA-Public Use
  Company Number: FR-MERCK KGAA-2046590

PATIENT
  Age: 65 Year
  Sex: Female

DRUGS (1)
  1. NOVOTHYROX [Suspect]
     Active Substance: LEVOTHYROXINE SODIUM
     Indication: PRODUCT USED FOR UNKNOWN INDICATION
     Dates: start: 201705, end: 201709

REACTIONS (29)
  - Disturbance in attention [None]
  - Anxiety [None]
  - Weight loss poor [None]
  - Alopecia [None]
  - Speech disorder [None]
  - Apathy [None]
  - Face injury [None]
  - Rib fracture [None]
  - Somnolence [None]
  - Wrist fracture [None]
  - Dizziness [None]
  - Memory impairment [None]
  - Haematoma [None]
  - Hypertension [None]
  - Mobility decreased [None]
  - Head injury [None]
  - Hyperhidrosis [None]
  - Loss of personal independence in daily activities [None]
  - Fall [None]
  - Contusion [None]
  - Social avoidant behaviour [None]
  - Palpitations [None]
  - Fatigue [None]
  - Impatience [None]
  - Visual impairment [None]
  - General physical health deterioration [None]
  - Fluid retention [None]
  - Dysuria [None]
  - Dyspnoea [None]

NARRATIVE: CASE EVENT DATE: 2017
